FAERS Safety Report 24246369 (Version 1)
Quarter: 2024Q3

REPORT INFORMATION
  Report Type: Spontaneous
  Country: EU (occurrence: EU)
  Receive Date: 20240825
  Receipt Date: 20240825
  Transmission Date: 20241017
  Serious: Yes (Other)
  Sender: BAUSCH AND LOMB
  Company Number: DE-BRISTOL-MYERS SQUIBB COMPANY-2024-126472

PATIENT
  Age: 75 Year
  Sex: Female

DRUGS (14)
  1. DEXAMETHASONE SODIUM PHOSPHATE [Suspect]
     Active Substance: DEXAMETHASONE PHOSPHATE\DEXAMETHASONE SODIUM PHOSPHATE
     Indication: Plasma cell myeloma
     Route: 065
     Dates: start: 201809, end: 201811
  2. DEXAMETHASONE SODIUM PHOSPHATE [Suspect]
     Active Substance: DEXAMETHASONE PHOSPHATE\DEXAMETHASONE SODIUM PHOSPHATE
     Dosage: 2 CYCLES OF CARFILZOMIB/LENALIDOMIDE/DEXA [DEXAMETHASONE]
     Route: 065
     Dates: start: 201811
  3. DEXAMETHASONE SODIUM PHOSPHATE [Suspect]
     Active Substance: DEXAMETHASONE PHOSPHATE\DEXAMETHASONE SODIUM PHOSPHATE
     Route: 065
     Dates: start: 202106, end: 202203
  4. DEXAMETHASONE SODIUM PHOSPHATE [Suspect]
     Active Substance: DEXAMETHASONE PHOSPHATE\DEXAMETHASONE SODIUM PHOSPHATE
     Route: 065
     Dates: start: 202203
  5. DEXAMETHASONE SODIUM PHOSPHATE [Suspect]
     Active Substance: DEXAMETHASONE PHOSPHATE\DEXAMETHASONE SODIUM PHOSPHATE
     Route: 065
     Dates: start: 202311
  6. LENALIDOMIDE [Suspect]
     Active Substance: LENALIDOMIDE
     Indication: Plasma cell myeloma
     Dosage: NOV-18 2 CYCLES OF CARFILZOMIB/LENALIDOMIDE/DEXA [DEXAMETHASONE]
     Route: 065
     Dates: start: 201811, end: 201910
  7. LENALIDOMIDE [Suspect]
     Active Substance: LENALIDOMIDE
     Route: 065
     Dates: start: 202104
  8. CARFILZOMIB [Suspect]
     Active Substance: CARFILZOMIB
     Indication: Plasma cell myeloma
     Dosage: 2 CYCLES OF CARFILZOMIB/LENALIDOMIDE/DEXA [DEXAMETHASONE]
     Route: 065
     Dates: start: 201811
  9. CARFILZOMIB [Suspect]
     Active Substance: CARFILZOMIB
     Dosage: 2 CYCLES OF CARFILZOMIB/LENALIDOMIDE/DEXA [DEXAMETHASONE]
     Route: 065
     Dates: start: 202106, end: 202203
  10. DARATUMUMAB [Suspect]
     Active Substance: DARATUMUMAB
     Indication: Plasma cell myeloma
     Route: 065
     Dates: start: 202106, end: 202203
  11. ELOTUZUMAB [Suspect]
     Active Substance: ELOTUZUMAB
     Indication: Plasma cell myeloma
     Route: 065
     Dates: start: 202203
  12. ELOTUZUMAB [Suspect]
     Active Substance: ELOTUZUMAB
     Route: 065
     Dates: start: 202311
  13. POMALIDOMIDE [Suspect]
     Active Substance: POMALIDOMIDE
     Indication: Plasma cell myeloma
     Route: 065
     Dates: start: 202203
  14. POMALIDOMIDE [Suspect]
     Active Substance: POMALIDOMIDE
     Route: 065
     Dates: start: 202311

REACTIONS (6)
  - Femur fracture [Unknown]
  - Plasma cell myeloma [Unknown]
  - Fall [Unknown]
  - Hypersensitivity [Unknown]
  - Paraproteinaemia [Unknown]
  - Osteolysis [Unknown]

NARRATIVE: CASE EVENT DATE: 20190301
